FAERS Safety Report 25049703 (Version 1)
Quarter: 2025Q1

REPORT INFORMATION
  Report Type: Spontaneous
  Country: US (occurrence: US)
  Receive Date: 20250307
  Receipt Date: 20250307
  Transmission Date: 20250409
  Serious: No
  Sender: MERCK SHARP & DOHME LLC
  Company Number: US-PFIZER INC-PV202500016680

PATIENT
  Age: 82 Year

DRUGS (1)
  1. TUKYSA [Suspect]
     Active Substance: TUCATINIB

REACTIONS (1)
  - Cerebral disorder [Unknown]
